FAERS Safety Report 7738003-1 (Version None)
Quarter: 2011Q3

REPORT INFORMATION
  Report Type: 
  Country: None (occurrence: None)
  Receive Date: 20110906
  Receipt Date: 20110818
  Transmission Date: 20111222
  Serious: Yes (Death)
  Sender: FDA-Public Use
  Company Number: JPI-P-014789

PATIENT
  Age: 27 Year
  Sex: Male

DRUGS (1)
  1. XYREM [Suspect]
     Indication: PRODUCT USED FOR UNKNOWN INDICATION
     Dosage: 4.5 MG(2.25 GM, 2 IN 1 D), ORAL
     Route: 048
     Dates: start: 20031009, end: 20031009

REACTIONS (2)
  - COMPLETED SUICIDE [None]
  - FALL [None]
